FAERS Safety Report 5451267-2 (Version None)
Quarter: 2007Q3

REPORT INFORMATION
  Report Type: 
  Country: None (occurrence: None)
  Receive Date: 20070911
  Receipt Date: 20070911
  Transmission Date: 20080115
  Serious: Yes (Death)
  Sender: FDA-Public Use
  Company Number: None

PATIENT
  Age: 76 Year
  Sex: Male
  Weight: 86.1834 kg

DRUGS (1)
  1. GLYBURIDE [Suspect]
     Indication: DIABETES MELLITUS
     Dosage: 2.5MG 1 TIMES PER DAY PO
     Route: 048
     Dates: start: 20070203, end: 20070210

REACTIONS (8)
  - ABNORMAL BEHAVIOUR [None]
  - CEREBROVASCULAR ACCIDENT [None]
  - CONFUSIONAL STATE [None]
  - CONVULSION [None]
  - DEMENTIA [None]
  - DISORIENTATION [None]
  - HEADACHE [None]
  - LETHARGY [None]
